FAERS Safety Report 25659833 (Version 1)
Quarter: 2025Q3

REPORT INFORMATION
  Report Type: Report from Study
  Country: GB (occurrence: GB)
  Receive Date: 20250808
  Receipt Date: 20250808
  Transmission Date: 20251021
  Serious: Yes (Other)
  Sender: ROCHE
  Company Number: GB-ROCHE-10000341936

PATIENT

DRUGS (3)
  1. ATEZOLIZUMAB [Suspect]
     Active Substance: ATEZOLIZUMAB
     Indication: Malignant melanoma
     Route: 065
  2. PEMBROLIZUMAB [Suspect]
     Active Substance: PEMBROLIZUMAB
     Indication: Malignant melanoma
     Route: 065
  3. NIVOLUMAB [Suspect]
     Active Substance: NIVOLUMAB
     Indication: Malignant melanoma
     Route: 065

REACTIONS (8)
  - Immune system disorder [Unknown]
  - Skin toxicity [Unknown]
  - Musculoskeletal toxicity [Unknown]
  - Endocrine toxicity [Unknown]
  - Toxicity to various agents [Unknown]
  - Diarrhoea [Unknown]
  - Colitis [Unknown]
  - Mucosal toxicity [Unknown]
